FAERS Safety Report 20225771 (Version 1)
Quarter: 2021Q4

REPORT INFORMATION
  Report Type: Spontaneous
  Country: CA (occurrence: CA)
  Receive Date: 20211224
  Receipt Date: 20211224
  Transmission Date: 20220303
  Serious: Yes (Other)
  Sender: FDA-Public Use
  Company Number: CA-AUROBINDO-AUR-APL-2021-052892

PATIENT
  Age: 68 Year
  Sex: Male
  Weight: 101 kg

DRUGS (9)
  1. MELPHALAN [Suspect]
     Active Substance: MELPHALAN
     Indication: Stem cell transplant
     Dosage: 292.6 MILLIGRAM, ONCE A DAY
     Route: 042
  2. BUSULFAN [Suspect]
     Active Substance: BUSULFAN
     Indication: Stem cell transplant
     Dosage: 269.76 MILLIGRAM, ONCE A DAY
     Route: 042
  3. LENALIDOMIDE [Suspect]
     Active Substance: LENALIDOMIDE
     Indication: Stem cell transplant
     Dosage: 5 MILLIGRAM, ONCE A DAY
     Route: 048
  4. LENALIDOMIDE [Suspect]
     Active Substance: LENALIDOMIDE
     Dosage: 10 MILLIGRAM, ONCE A DAY
     Route: 048
  5. LENALIDOMIDE [Suspect]
     Active Substance: LENALIDOMIDE
     Dosage: 15 MILLIGRAM, ONCE A DAY
     Route: 048
  6. CHOLESTYRAMINE [Concomitant]
     Active Substance: CHOLESTYRAMINE
     Indication: Diarrhoea
     Dosage: 4 MILLIGRAM, ONCE A DAY
     Route: 065
  7. FERROUS SULFATE ANHYDROUS [Concomitant]
     Active Substance: FERROUS SULFATE ANHYDROUS
     Indication: Serum ferritin decreased
     Dosage: 300 MILLIGRAM, ONCE A DAY
     Route: 065
  8. RABEPRAZOLE [Concomitant]
     Active Substance: RABEPRAZOLE
     Indication: Product used for unknown indication
     Dosage: 20 MILLIGRAM, ONCE A DAY
     Route: 065
  9. WARFARIN [Concomitant]
     Active Substance: WARFARIN
     Indication: Thrombosis prophylaxis
     Dosage: 5 MILLIGRAM, ONCE A DAY
     Route: 065

REACTIONS (1)
  - Second primary malignancy [Recovered/Resolved]
